FAERS Safety Report 4722058-2 (Version None)
Quarter: 2005Q3

REPORT INFORMATION
  Report Type: 
  Country: None (occurrence: None)
  Receive Date: 20050722
  Receipt Date: 20050714
  Transmission Date: 20060218
  Serious: Yes (Hospitalization)
  Sender: FDA-Public Use
  Company Number: US-ROCHE-410897

PATIENT
  Age: 65 Year
  Sex: Male
  Weight: 67.1 kg

DRUGS (5)
  1. CAPECITABINE [Suspect]
     Route: 048
     Dates: start: 20050222, end: 20050627
  2. BEVACIZUMAB [Suspect]
     Route: 042
     Dates: start: 20050222, end: 20050627
  3. OXALIPLATIN [Suspect]
     Route: 065
  4. SENOKOT [Concomitant]
     Dosage: PRN.
  5. LORTAB [Concomitant]
     Dosage: PRN.

REACTIONS (6)
  - COLITIS [None]
  - HYPERTENSION [None]
  - HYPONATRAEMIA [None]
  - LARGE INTESTINE PERFORATION [None]
  - NAUSEA [None]
  - VOMITING [None]
